FAERS Safety Report 8980789 (Version 1)
Quarter: 2012Q4

REPORT INFORMATION
  Report Type: 
  Country: JP (occurrence: JP)
  Receive Date: 20121221
  Receipt Date: 20121221
  Transmission Date: 20130627
  Serious: No
  Sender: FDA-Public Use
  Company Number: JP-ELI_LILLY_AND_COMPANY-JP201209002463

PATIENT
  Age: 55 Year
  Sex: Female

DRUGS (3)
  1. FORTEO [Suspect]
     Dosage: UNK, each evening
     Route: 058
  2. FORTEO [Suspect]
     Dosage: UNK, each morning
     Route: 058
  3. FORTEO [Suspect]
     Dosage: UNK, each evening
     Route: 058

REACTIONS (3)
  - Medication error [Unknown]
  - Arthralgia [Unknown]
  - Nausea [Unknown]
